FAERS Safety Report 5625566-5 (Version None)
Quarter: 2008Q1

REPORT INFORMATION
  Report Type: 
  Country: None (occurrence: None)
  Receive Date: 20080211
  Receipt Date: 20080211
  Transmission Date: 20080703
  Serious: No
  Sender: FDA-Public Use
  Company Number: None

PATIENT
  Sex: Female
  Weight: 80 kg

DRUGS (2)
  1. CYCLOPHOSPHAMIDE [Suspect]
     Dosage: 1092 MG
  2. DOXORUBICIN HYDROCHLORIDE [Suspect]
     Dosage: 109 MG

REACTIONS (2)
  - COUGH [None]
  - DYSPNOEA EXERTIONAL [None]
